FAERS Safety Report 18334618 (Version 3)
Quarter: 2021Q1

REPORT INFORMATION
  Report Type: Other
  Country: AR (occurrence: AR)
  Receive Date: 20201001
  Receipt Date: 20210122
  Transmission Date: 20210419
  Serious: Yes (Other)
  Sender: FDA-Public Use
  Company Number: AR-ROCHE-2687607

PATIENT
  Age: 66 Year
  Sex: Female

DRUGS (2)
  1. XOLAIR [Suspect]
     Active Substance: OMALIZUMAB
     Route: 065
     Dates: start: 2013
  2. XOLAIR [Suspect]
     Active Substance: OMALIZUMAB
     Indication: ASTHMA
     Route: 058
     Dates: start: 20111101

REACTIONS (12)
  - Choking [Unknown]
  - Weight decreased [Unknown]
  - Somatic symptom disorder [Unknown]
  - Dysphonia [Unknown]
  - Memory impairment [Unknown]
  - Asthma [Recovered/Resolved]
  - Asthmatic crisis [Unknown]
  - Weight increased [Unknown]
  - Depression [Unknown]
  - Decreased appetite [Not Recovered/Not Resolved]
  - Asthmatic crisis [Recovered/Resolved]
  - Nervousness [Not Recovered/Not Resolved]

NARRATIVE: CASE EVENT DATE: 201510
